FAERS Safety Report 7258482-6 (Version None)
Quarter: 2011Q1

REPORT INFORMATION
  Report Type: 
  Country: None (occurrence: None)
  Receive Date: 20110129
  Receipt Date: 20100817
  Transmission Date: 20110831
  Serious: No
  Sender: FDA-Public Use
  Company Number: US-ABBOTT-10P-163-0665408-00

PATIENT
  Sex: Female
  Weight: 55.842 kg

DRUGS (5)
  1. UNKNOWN THYROID PREPARATION [Concomitant]
     Indication: PRODUCT USED FOR UNKNOWN INDICATION
     Route: 048
  2. HUMIRA [Suspect]
     Indication: PSORIASIS
     Route: 058
     Dates: start: 20091201, end: 20100601
  3. CYMBALTA [Concomitant]
     Indication: DEPRESSION
     Route: 048
  4. MIRTAZAPINE [Concomitant]
     Indication: DEPRESSION
     Route: 048
  5. ZOLPIDIEM [Concomitant]
     Indication: INSOMNIA
     Route: 048

REACTIONS (1)
  - DIARRHOEA [None]
